FAERS Safety Report 20356066 (Version 2)
Quarter: 2022Q1

REPORT INFORMATION
  Report Type: Report from Study
  Country: US (occurrence: US)
  Receive Date: 20220120
  Receipt Date: 20220328
  Transmission Date: 20220423
  Serious: Yes (Hospitalization)
  Sender: FDA-Public Use
  Company Number: US-JNJFOC-20220121717

PATIENT
  Age: 41 Year
  Sex: Female
  Weight: 79.450 kg

DRUGS (13)
  1. SPRAVATO [Suspect]
     Active Substance: ESKETAMINE
     Indication: Depression
     Dosage: 56 MG,2 TOTAL DOSES
     Dates: start: 20210225, end: 20210302
  2. SPRAVATO [Suspect]
     Active Substance: ESKETAMINE
     Dosage: 84 MG,4 TOTAL DOSES
     Dates: start: 20210304, end: 20210316
  3. SPRAVATO [Suspect]
     Active Substance: ESKETAMINE
     Dosage: 112 MG,1 TOTAL DOSES
     Dates: start: 20210318, end: 20210318
  4. SPRAVATO [Suspect]
     Active Substance: ESKETAMINE
     Dosage: 56 MG,1 TOTAL DOSES
     Dates: start: 20210325, end: 20210325
  5. SPRAVATO [Suspect]
     Active Substance: ESKETAMINE
     Dosage: 112 MG,1 TOTAL DOSES
     Dates: start: 20210330, end: 20210330
  6. SPRAVATO [Suspect]
     Active Substance: ESKETAMINE
     Dosage: 84 MG,1 TOTAL DOSES
     Dates: start: 20210401, end: 20210401
  7. SPRAVATO [Suspect]
     Active Substance: ESKETAMINE
     Dosage: 112 MG,7 TOTAL DOSES
     Dates: start: 20210406, end: 20210527
  8. SPRAVATO [Suspect]
     Active Substance: ESKETAMINE
     Dosage: 84 MG,1 TOTAL DOSES
     Dates: start: 20210715, end: 20210715
  9. SPRAVATO [Suspect]
     Active Substance: ESKETAMINE
     Dosage: 112 MG,1 TOTAL DOSES
     Dates: start: 20210727, end: 20210727
  10. DAYVIGO [Concomitant]
     Active Substance: LEMBOREXANT
     Indication: Insomnia
     Dates: start: 2021
  11. MYDAYIS [Concomitant]
     Active Substance: AMPHETAMINE ASPARTATE\AMPHETAMINE SULFATE\DEXTROAMPHETAMINE SACCHARATE\DEXTROAMPHETAMINE SULFATE
     Indication: Attention deficit hyperactivity disorder
     Dates: start: 2021
  12. DIAZEPAM [Concomitant]
     Active Substance: DIAZEPAM
     Indication: Anxiety
     Dates: start: 2021
  13. PROPRANOLOL [Concomitant]
     Active Substance: PROPRANOLOL HYDROCHLORIDE
     Indication: Blood pressure measurement
     Dates: start: 2021

REACTIONS (2)
  - Cerebrovascular accident [Unknown]
  - Aneurysm [Unknown]

NARRATIVE: CASE EVENT DATE: 20210811
